FAERS Safety Report 14753403 (Version 2)
Quarter: 2018Q2

REPORT INFORMATION
  Report Type: Spontaneous
  Country: JP (occurrence: JP)
  Receive Date: 20180412
  Receipt Date: 20180509
  Transmission Date: 20180711
  Serious: No
  Sender: FDA-Public Use
  Company Number: JP-ROCHE-2104446

PATIENT
  Age: 77 Year
  Sex: Female
  Weight: 45 kg

DRUGS (15)
  1. CODEINE PHOSPHATE [Concomitant]
     Active Substance: CODEINE PHOSPHATE
     Dosage: DOSAGE IS UNCERTAIN.
     Route: 048
     Dates: start: 20180322
  2. LIPITOR [Concomitant]
     Active Substance: ATORVASTATIN CALCIUM
     Dosage: DOSAGE IS UNCERTAIN.
     Route: 065
     Dates: start: 2013
  3. SP [Concomitant]
     Dosage: DOSAGE IS UNCERTAIN.
     Route: 049
     Dates: start: 20180322
  4. NEXIUM [Concomitant]
     Active Substance: ESOMEPRAZOLE MAGNESIUM
     Dosage: DOSAGE IS UNCERTAIN.
     Route: 048
     Dates: start: 2013
  5. LOBU [Concomitant]
     Active Substance: LOBUCAVIR
     Dosage: DOSAGE IS UNCERTAIN.
     Route: 048
     Dates: start: 20180322
  6. MAGNESIUM OXIDE. [Concomitant]
     Active Substance: MAGNESIUM OXIDE
     Dosage: DOSAGE IS UNCERTAIN.
     Route: 065
     Dates: start: 20180322
  7. AMLODIPINE BESILATE [Concomitant]
     Active Substance: AMLODIPINE BESYLATE
     Dosage: DOSAGE IS UNCERTAIN.
     Route: 048
     Dates: start: 2013
  8. ATORVASTATIN [Concomitant]
     Active Substance: ATORVASTATIN
  9. TELMISARTAN. [Concomitant]
     Active Substance: TELMISARTAN
  10. PODONIN S [Concomitant]
  11. TAMIFLU [Suspect]
     Active Substance: OSELTAMIVIR PHOSPHATE
     Indication: INFLUENZA
     Route: 048
     Dates: start: 20180324, end: 20180324
  12. TANDOSPIRONE CITRATE [Concomitant]
     Active Substance: TANDOSPIRONE CITRATE
     Dosage: DOSAGE IS UNCERTAIN.
     Route: 048
     Dates: start: 2013
  13. MARZULENE-S [Concomitant]
     Active Substance: SODIUM GUALENATE
     Dosage: DOSAGE IS UNCERTAIN.
     Route: 065
  14. AZUNOL [Concomitant]
     Active Substance: SODIUM GUALENATE
     Dosage: DOSAGE IS UNCERTAIN.
     Route: 048
     Dates: start: 2013
  15. MICARDIS [Concomitant]
     Active Substance: TELMISARTAN
     Dosage: DOSAGE IS UNCERTAIN.
     Route: 065
     Dates: start: 2013

REACTIONS (5)
  - Vomiting [Recovered/Resolved]
  - Abnormal behaviour [Recovered/Resolved]
  - Nightmare [Unknown]
  - Psychiatric symptom [Recovered/Resolved]
  - Diarrhoea [Recovered/Resolved]

NARRATIVE: CASE EVENT DATE: 20180324
